FAERS Safety Report 9197571 (Version 1)
Quarter: 2013Q1

REPORT INFORMATION
  Report Type: Report from Study
  Country: FR (occurrence: FR)
  Receive Date: 20130328
  Receipt Date: 20130328
  Transmission Date: 20140127
  Serious: Yes (Death)
  Sender: FDA-Public Use
  Company Number: FR-GLAXOSMITHKLINE-B0877541A

PATIENT
  Sex: Male
  Weight: 70 kg

DRUGS (2)
  1. ZANAMIVIR [Suspect]
     Indication: INFLUENZA
     Dosage: 600MG TWICE PER DAY
     Route: 042
     Dates: start: 20130201
  2. OSELTAMIVIR [Concomitant]
     Indication: INFLUENZA
     Dosage: 150MG TWICE PER DAY
     Route: 065

REACTIONS (1)
  - Death [Fatal]
